FAERS Safety Report 8483843-7 (Version None)
Quarter: 2012Q3

REPORT INFORMATION
  Report Type: 
  Country: None (occurrence: None)
  Receive Date: 20120703
  Receipt Date: 20120625
  Transmission Date: 20120928
  Serious: No
  Sender: FDA-Public Use
  Company Number: US-BIOGENIDEC-2012BI022665

PATIENT
  Sex: Female

DRUGS (3)
  1. AVONEX [Suspect]
     Route: 030
     Dates: start: 20070207, end: 20070815
  2. AVONEX [Suspect]
     Route: 030
     Dates: start: 20071214
  3. AVONEX [Suspect]
     Indication: MULTIPLE SCLEROSIS
     Route: 030
     Dates: start: 20041211, end: 20061001

REACTIONS (5)
  - DEPRESSION [None]
  - PAIN [None]
  - MEMORY IMPAIRMENT [None]
  - FATIGUE [None]
  - INFLUENZA LIKE ILLNESS [None]
